FAERS Safety Report 6226600-4 (Version None)
Quarter: 2009Q2

REPORT INFORMATION
  Report Type: 
  Country: None (occurrence: None)
  Receive Date: 20090612
  Receipt Date: 20090603
  Transmission Date: 20091009
  Serious: Yes (Other)
  Sender: FDA-Public Use
  Company Number: TR-JNJFOC-20090602041

PATIENT
  Age: 7 Decade
  Sex: Male

DRUGS (4)
  1. RISPERDAL [Suspect]
     Indication: SCHIZOPHRENIA, PARANOID TYPE
     Route: 030
  2. RISPERDAL [Suspect]
     Route: 048
  3. RISPERDAL [Suspect]
     Route: 048
  4. RISPERDAL [Suspect]
     Route: 048

REACTIONS (9)
  - ANXIETY [None]
  - DECREASED APPETITE [None]
  - EXTRAPYRAMIDAL DISORDER [None]
  - FATIGUE [None]
  - HERNIA REPAIR [None]
  - INSOMNIA [None]
  - LIBIDO DECREASED [None]
  - MUSCLE SPASMS [None]
  - WEIGHT DECREASED [None]
